FAERS Safety Report 13376466 (Version 2)
Quarter: 2017Q4

REPORT INFORMATION
  Report Type: Spontaneous
  Country: US (occurrence: US)
  Receive Date: 20170328
  Receipt Date: 20171030
  Transmission Date: 20180320
  Serious: No
  Sender: FDA-Public Use
  Company Number: US-PFIZER INC-2017130896

PATIENT
  Age: 73 Year
  Sex: Female
  Weight: 47.62 kg

DRUGS (1)
  1. SUTENT [Suspect]
     Active Substance: SUNITINIB MALATE
     Indication: PANCREATIC CARCINOMA
     Dosage: 37.5 MG, DAILY [3 DAILY]
     Route: 048
     Dates: start: 20170131, end: 201708

REACTIONS (3)
  - Hepatic enzyme increased [Unknown]
  - Influenza [Unknown]
  - Skin discolouration [Unknown]
